FAERS Safety Report 7538011-X (Version None)
Quarter: 2011Q2

REPORT INFORMATION
  Report Type: 
  Country: None (occurrence: None)
  Receive Date: 20110609
  Receipt Date: 20110603
  Transmission Date: 20111010
  Serious: Yes (Other)
  Sender: FDA-Public Use
  Company Number: US-PFIZER INC-2011121133

PATIENT
  Sex: Male

DRUGS (14)
  1. NEXIUM [Concomitant]
     Dosage: UNK
  2. VALSARTAN [Concomitant]
     Dosage: UNK
  3. ZOLPIDEM [Concomitant]
     Dosage: UNK
  4. PRENATAL VITAMINS [Concomitant]
     Dosage: UNK
  5. PRAVASTATIN [Concomitant]
     Dosage: UNK
  6. AMITRIPTYLINE [Concomitant]
     Dosage: UNK
  7. VIRACEPT [Suspect]
     Dosage: UNK
  8. ACETYLSALICYLIC ACID [Concomitant]
     Dosage: UNK
  9. TAMSULOSIN HYDROCHLORIDE [Concomitant]
     Dosage: UNK
  10. VITAMIN D [Concomitant]
     Dosage: UNK
  11. COMBIVIR [Suspect]
     Indication: HIV INFECTION
     Dosage: UNK
     Route: 048
     Dates: start: 19991101
  12. DILTIAZEM HYDROCHLORIDE [Concomitant]
     Dosage: UNK
  13. HYDROCODONE [Concomitant]
     Dosage: UNK
  14. INDOMETHACIN [Concomitant]
     Dosage: UNK

REACTIONS (2)
  - HEPATIC ENZYME INCREASED [None]
  - GASTROOESOPHAGEAL REFLUX DISEASE [None]
